FAERS Safety Report 9214357 (Version 2)
Quarter: 2013Q4

REPORT INFORMATION
  Report Type: Spontaneous
  Country: US (occurrence: US)
  Receive Date: 20130405
  Receipt Date: 20131028
  Transmission Date: 20140711
  Serious: Yes (Hospitalization)
  Sender: FDA-Public Use
  Company Number: US-BAYER-2013-040511

PATIENT
  Age: 37 Year
  Sex: Female
  Weight: 107.48 kg

DRUGS (9)
  1. YAZ [Suspect]
  2. ZOLOFT [Concomitant]
     Dosage: 100 MG, UNK
     Route: 048
  3. CLARITIN [Concomitant]
     Dosage: 10 MG, UNK
     Route: 048
  4. NASONEX [Concomitant]
     Route: 045
  5. ALLEGRA [Concomitant]
     Route: 048
  6. ALPHAGAN [Concomitant]
     Route: 047
  7. ALLERGY SHOT [Concomitant]
     Dosage: 2 TIMES A WEEK
     Route: 051
  8. LORTAB [Concomitant]
     Indication: PAIN
  9. CIPROFLOXACIN [Concomitant]

REACTIONS (3)
  - Cholecystitis acute [Recovered/Resolved]
  - Gallbladder disorder [None]
  - Injury [None]
